FAERS Safety Report 7560213-7 (Version None)
Quarter: 2011Q2

REPORT INFORMATION
  Report Type: 
  Country: None (occurrence: None)
  Receive Date: 20110621
  Receipt Date: 20110620
  Transmission Date: 20111010
  Serious: Yes (Hospitalization)
  Sender: FDA-Public Use
  Company Number: B0727324A

PATIENT
  Sex: Female

DRUGS (1)
  1. ROSIGLITAZONE MALEATE [Suspect]
     Route: 048

REACTIONS (5)
  - HYPERTENSION [None]
  - FLUID RETENTION [None]
  - MYOCARDIAL INFARCTION [None]
  - CHEST PAIN [None]
  - ARTERIOSCLEROSIS [None]
